FAERS Safety Report 20097647 (Version 1)
Quarter: 2021Q4

REPORT INFORMATION
  Report Type: Spontaneous
  Country: PL (occurrence: PL)
  Receive Date: 20211122
  Receipt Date: 20211122
  Transmission Date: 20220303
  Serious: Yes (Death)
  Sender: FDA-Public Use
  Company Number: None

PATIENT
  Age: 63 Year
  Sex: Female
  Weight: 58 kg

DRUGS (9)
  1. CARBOPLATIN [Suspect]
     Active Substance: CARBOPLATIN
     Indication: HER2 positive breast cancer
     Dosage: 450 MG, CYCLIC
     Route: 042
     Dates: start: 20210618, end: 20210811
  2. TRAZIMERA [Suspect]
     Active Substance: TRASTUZUMAB-QYYP
     Indication: HER2 positive breast cancer
     Dosage: 348 MG, CYCLIC
     Route: 042
     Dates: start: 20210618, end: 20210811
  3. DOCETAXEL [Suspect]
     Active Substance: DOCETAXEL
     Indication: HER2 positive breast cancer
     Dosage: 100 MG
     Route: 042
     Dates: start: 20210618, end: 20210811
  4. PERJETA [Suspect]
     Active Substance: PERTUZUMAB
     Indication: HER2 positive breast cancer
     Dosage: 420 MG, CYCLIC
     Route: 042
     Dates: start: 20210618, end: 20210811
  5. PEGFILGRASTIM [Concomitant]
     Active Substance: PEGFILGRASTIM
     Indication: Chemotherapy side effect prophylaxis
     Dosage: DAY AFTER ENDING TCHP INFUSION.
     Route: 058
     Dates: start: 20210618, end: 20210811
  6. ONDANSETRON [Concomitant]
     Active Substance: ONDANSETRON
     Indication: Prophylaxis of nausea and vomiting
     Dosage: ANTIEMETIC PROPHYLAXIS ON THE DAY OF CHEMOTHERAPY
     Route: 042
     Dates: start: 20210618, end: 20210811
  7. CLEMASTINE [Concomitant]
     Active Substance: CLEMASTINE
     Indication: Breast cancer female
     Dosage: BEFORE DRUGS INFUSION ON THE DAY OF TCHP
     Route: 042
     Dates: start: 20210618, end: 20210811
  8. DEXAMETHASONE [Concomitant]
     Active Substance: DEXAMETHASONE
     Indication: Chemotherapy side effect prophylaxis
     Dosage: 1 TAB DAY BEFORE CHEMO/3 TAB ON THE DAY OF CHEMO/ 2 TAB THE DAY AFTER CHEMO
     Dates: start: 20210617, end: 20210812
  9. BISORATIO [Concomitant]
     Indication: Essential hypertension
     Dosage: 5 MG

REACTIONS (2)
  - Diverticulitis [Fatal]
  - Off label use [Unknown]

NARRATIVE: CASE EVENT DATE: 20210618
